FAERS Safety Report 6720900-7 (Version None)
Quarter: 2010Q2

REPORT INFORMATION
  Report Type: 
  Country: None (occurrence: None)
  Receive Date: 20100512
  Receipt Date: 20100428
  Transmission Date: 20101027
  Serious: Yes (Other)
  Sender: FDA-Public Use
  Company Number: US-JNJFOC-20100501109

PATIENT
  Sex: Female

DRUGS (2)
  1. MEBENDAZOLE [Suspect]
     Indication: TOXOCARIASIS
     Route: 065
  2. CORTICOSTEROID [Suspect]
     Indication: ASTHMA
     Route: 048

REACTIONS (2)
  - ASTHMA [None]
  - EOSINOPHILIA [None]
